FAERS Safety Report 22035877 (Version 1)
Quarter: 2023Q1

REPORT INFORMATION
  Report Type: Spontaneous
  Country: US (occurrence: None)
  Receive Date: 20230223
  Receipt Date: 20230223
  Transmission Date: 20230417
  Serious: Yes (Hospitalization)
  Sender: FDA-Public Use
  Company Number: None

PATIENT
  Age: 68 Year
  Sex: Female

DRUGS (1)
  1. AMBRISENTAN [Suspect]
     Active Substance: AMBRISENTAN
     Indication: Pulmonary arterial hypertension
     Dosage: FREQUENCY : DAILY;?
     Route: 048
     Dates: start: 20220526

REACTIONS (7)
  - Chronic left ventricular failure [None]
  - Pulmonary hypertension [None]
  - Dyspnoea [None]
  - Peripheral swelling [None]
  - Cardiac failure congestive [None]
  - Polyuria [None]
  - Interstitial lung disease [None]

NARRATIVE: CASE EVENT DATE: 20221126
